FAERS Safety Report 15298304 (Version 2)
Quarter: 2018Q3

REPORT INFORMATION
  Report Type: Report from Study
  Country: US (occurrence: US)
  Receive Date: 20180820
  Receipt Date: 20180824
  Transmission Date: 20181010
  Serious: Yes (Hospitalization)
  Sender: FDA-Public Use
  Company Number: US-ACTELION-A-US2018-177714

PATIENT
  Age: 65 Year
  Sex: Female

DRUGS (2)
  1. TRACLEER [Suspect]
     Active Substance: BOSENTAN
     Indication: PULMONARY ARTERIAL HYPERTENSION
     Dosage: 125 MG, BID
     Route: 048
     Dates: start: 2004, end: 201712
  2. REMODULIN [Concomitant]
     Active Substance: TREPROSTINIL
     Dosage: 134 NG/KG, PER MIN
     Route: 042
     Dates: start: 2003

REACTIONS (3)
  - Adenocarcinoma of colon [Recovered/Resolved]
  - Colectomy [Recovered/Resolved]
  - Ileostomy [Recovered/Resolved]
